FAERS Safety Report 12720284 (Version 2)
Quarter: 2016Q3

REPORT INFORMATION
  Report Type: Spontaneous
  Country: CN (occurrence: CN)
  Receive Date: 20160907
  Receipt Date: 20160909
  Transmission Date: 20161109
  Serious: Yes (Other)
  Sender: FDA-Public Use
  Company Number: CN-ROCHE-1826916

PATIENT
  Age: 81 Year

DRUGS (6)
  1. AVASTIN [Suspect]
     Active Substance: BEVACIZUMAB
     Indication: GASTROINTESTINAL CARCINOMA
     Dosage: 300 MG AND 400 MG ALTERNATE USE.
     Route: 065
  2. OXALIPLATIN. [Suspect]
     Active Substance: OXALIPLATIN
     Indication: GASTROINTESTINAL CARCINOMA
     Dosage: 21 DAYS A REGIMEN
     Route: 065
  3. XELODA [Suspect]
     Active Substance: CAPECITABINE
     Dosage: MORE THAN ONE MONTH PER REGIMEN
     Route: 065
  4. AVASTIN [Suspect]
     Active Substance: BEVACIZUMAB
     Dosage: 300MG AND 400MG ALTERNATE USE ONCE
     Route: 065
  5. OXALIPLATIN. [Suspect]
     Active Substance: OXALIPLATIN
     Dosage: MORE THAN ONCE MONTH PER CYCLE
     Route: 065
  6. XELODA [Suspect]
     Active Substance: CAPECITABINE
     Indication: GASTROINTESTINAL CARCINOMA
     Dosage: 21 DAYS REGIMEN
     Route: 065

REACTIONS (1)
  - Bone marrow failure [Recovering/Resolving]
